FAERS Safety Report 7981625-3 (Version None)
Quarter: 2011Q4

REPORT INFORMATION
  Report Type: 
  Country: None (occurrence: None)
  Receive Date: 20111215
  Receipt Date: 20111209
  Transmission Date: 20120403
  Serious: Yes (Death, Hospitalization)
  Sender: FDA-Public Use
  Company Number: FR-BRISTOL-MYERS SQUIBB COMPANY-16281859

PATIENT
  Age: 37 Year
  Sex: Male

DRUGS (1)
  1. HYDREA [Suspect]
     Indication: POLYCYTHAEMIA
     Dosage: UNK DATE: REDUCED TO 500 MG/48H. DURATION }5YEARS.

REACTIONS (2)
  - PHLEBITIS [None]
  - HAEMORRHAGE [None]
